FAERS Safety Report 5042049-4 (Version None)
Quarter: 2006Q2

REPORT INFORMATION
  Report Type: 
  Country: None (occurrence: None)
  Receive Date: 20060627
  Receipt Date: 20060609
  Transmission Date: 20061013
  Serious: Yes (Hospitalization)
  Sender: FDA-Public Use
  Company Number: CERZ-11244

PATIENT
  Age: 37 Year
  Sex: Female

DRUGS (13)
  1. CEREZYME [Suspect]
     Indication: GAUCHER'S DISEASE
     Dosage: 4400 UNITS Q2WKS IV
     Route: 042
     Dates: start: 19980303
  2. BENICAR [Concomitant]
  3. PREDNISONE [Concomitant]
  4. FOSAMAX [Concomitant]
  5. METHOTREXATE [Concomitant]
  6. FOLGARD [Concomitant]
  7. CELEBREX [Concomitant]
  8. CLONIDINE [Concomitant]
  9. NIFEDIPINE [Concomitant]
  10. ULTRACET [Concomitant]
  11. IMITREX [Concomitant]
  12. TRAZODONE HCL [Concomitant]
  13. PROMETHAZINE [Concomitant]

REACTIONS (18)
  - ANAEMIA [None]
  - CONVULSION [None]
  - CSF GLUCOSE DECREASED [None]
  - CSF PRESSURE INCREASED [None]
  - DEHYDRATION [None]
  - DISEASE RECURRENCE [None]
  - GASTROENTERITIS VIRAL [None]
  - GENERALISED OEDEMA [None]
  - HYPERTENSION [None]
  - LUPUS NEPHRITIS [None]
  - METABOLIC ACIDOSIS [None]
  - MIGRAINE [None]
  - MOANING [None]
  - PLATELET COUNT INCREASED [None]
  - RENAL FAILURE [None]
  - REVERSIBLE POSTERIOR LEUKOENCEPHALOPATHY SYNDROME [None]
  - SYSTEMIC LUPUS ERYTHEMATOSUS [None]
  - WHITE BLOOD CELL COUNT DECREASED [None]
